FAERS Safety Report 19140278 (Version 5)
Quarter: 2022Q3

REPORT INFORMATION
  Report Type: Spontaneous
  Country: US (occurrence: US)
  Receive Date: 20210415
  Receipt Date: 20220825
  Transmission Date: 20221026
  Serious: No
  Sender: FDA-Public Use
  Company Number: US-BIOGEN-2020BI00833042

PATIENT
  Age: 52 Year
  Sex: Female

DRUGS (2)
  1. TYSABRI [Suspect]
     Active Substance: NATALIZUMAB
     Indication: Multiple sclerosis
     Dosage: INFUSED OVER 1 HOUR
     Route: 050
     Dates: start: 20140915
  2. TYSABRI [Suspect]
     Active Substance: NATALIZUMAB
     Dosage: INFUSED OVER 1 HOUR
     Route: 050
     Dates: start: 20141028

REACTIONS (4)
  - Product dose omission issue [Not Recovered/Not Resolved]
  - Balance disorder [Unknown]
  - Fall [Recovered/Resolved]
  - Tooth infection [Unknown]

NARRATIVE: CASE EVENT DATE: 20200326
